FAERS Safety Report 7306615-5 (Version None)
Quarter: 2011Q1

REPORT INFORMATION
  Report Type: 
  Country: None (occurrence: None)
  Receive Date: 20110209
  Receipt Date: 20110125
  Transmission Date: 20110831
  Serious: Yes (Hospitalization)
  Sender: FDA-Public Use
  Company Number: FR-2011-0215

PATIENT
  Age: 40 Year
  Sex: Female

DRUGS (5)
  1. NAVELBINE [Suspect]
     Indication: BREAST CANCER
  2. ENDOXAN. MFR: NOT SPECIFIED [Suspect]
     Indication: BREAST CANCER
     Dosage: 241 MG/M2 IV
     Route: 042
     Dates: start: 20100615, end: 20101109
  3. TAXOL [Suspect]
     Indication: BREAST CANCER
     Dosage: 140 MG/M2 IV
     Route: 042
     Dates: start: 20101109, end: 20101109
  4. FLUOROURACIL [Suspect]
     Indication: BREAST CANCER
     Dosage: 422 MG/M2 IV
     Route: 042
     Dates: start: 20100615, end: 20101109
  5. FOLINATE DE CALCIUM AGUETTANT [Suspect]
     Indication: BREAST CANCER
     Dosage: 250 MG/M2 IV
     Route: 042
     Dates: start: 20100615, end: 20101109

REACTIONS (6)
  - BACK PAIN [None]
  - HYPERSENSITIVITY [None]
  - FLUSHING [None]
  - CHILLS [None]
  - PYREXIA [None]
  - HYPOTENSION [None]
